FAERS Safety Report 5196733-2 (Version None)
Quarter: 2006Q4

REPORT INFORMATION
  Report Type: 
  Country: None (occurrence: None)
  Receive Date: 20061227
  Receipt Date: 20061128
  Transmission Date: 20070319
  Serious: Yes (Death, Hospitalization, Other)
  Sender: FDA-Public Use
  Company Number: 2006150048

PATIENT
  Sex: Female

DRUGS (3)
  1. CELEBREX [Suspect]
     Dates: start: 20020802, end: 20020928
  2. BEXTRA [Concomitant]
     Dates: start: 20020423, end: 20030118
  3. VIOXX [Suspect]
     Dosage: ORAL
     Route: 048
     Dates: start: 20030619, end: 20030719

REACTIONS (2)
  - CEREBROVASCULAR ACCIDENT [None]
  - MYOCARDIAL INFARCTION [None]
